FAERS Safety Report 20405739 (Version 1)
Quarter: 2022Q1

REPORT INFORMATION
  Report Type: Spontaneous
  Country: US (occurrence: None)
  Receive Date: 20220130
  Receipt Date: 20220130
  Transmission Date: 20220424
  Serious: Yes (Other)
  Sender: FDA-Public Use
  Company Number: None

PATIENT
  Age: 44 Year
  Sex: Female
  Weight: 188.55 kg

DRUGS (10)
  1. FUROSEMIDE [Suspect]
     Active Substance: FUROSEMIDE
     Indication: Polyuria
     Dosage: FREQUENCY : DAILY;?
     Route: 048
     Dates: start: 20210831, end: 20220108
  2. BLOOD SUGAR MONITOR DEVICE [Concomitant]
  3. EZETIMIBE [Concomitant]
     Active Substance: EZETIMIBE
  4. JANUVIA [Concomitant]
  5. FUROSEMIDE [Concomitant]
     Active Substance: FUROSEMIDE
  6. LISINOPRIL AND HYDROCHLOROTHIAZIDE [Concomitant]
     Active Substance: HYDROCHLOROTHIAZIDE\LISINOPRIL
  7. METFORMIN [Concomitant]
     Active Substance: METFORMIN HYDROCHLORIDE
  8. IRON [Concomitant]
     Active Substance: IRON
  9. PAIN CREAMS + PILLS [Concomitant]
  10. VITAMINS [Concomitant]
     Active Substance: VITAMINS

REACTIONS (16)
  - Headache [None]
  - Pancreatic disorder [None]
  - Nausea [None]
  - Vomiting [None]
  - Dizziness [None]
  - Back pain [None]
  - Back pain [None]
  - Diarrhoea [None]
  - Peripheral swelling [None]
  - Peripheral swelling [None]
  - Paraesthesia [None]
  - Hypoaesthesia [None]
  - Abdominal distension [None]
  - Fatigue [None]
  - Arthralgia [None]
  - Feeling abnormal [None]
